FAERS Safety Report 10362501 (Version 2)
Quarter: 2014Q3

REPORT INFORMATION
  Report Type: Report from Study
  Country: AU (occurrence: AU)
  Receive Date: 20140805
  Receipt Date: 20140819
  Transmission Date: 20150326
  Serious: Yes (Hospitalization, Other)
  Sender: FDA-Public Use
  Company Number: PHHY2014AU092586

PATIENT
  Age: 73 Year
  Sex: Female

DRUGS (13)
  1. NEXIUM [Concomitant]
     Active Substance: ESOMEPRAZOLE MAGNESIUM
     Dosage: 40 MG, QD
  2. METOCLOPRAMIDE. [Concomitant]
     Active Substance: METOCLOPRAMIDE
     Dosage: 10 MG, DAILY
  3. COLOXYL [Concomitant]
     Dosage: 2 DF, BID PRN
  4. MIRTAZAPINE. [Concomitant]
     Active Substance: MIRTAZAPINE
     Dosage: 30 MG, NOCTE
  5. ESOMEPRAZOLE [Concomitant]
     Active Substance: ESOMEPRAZOLE
     Dosage: 40 MG, DAILY
  6. THYROXINE [Concomitant]
     Active Substance: LEVOTHYROXINE
     Dosage: 150 UG, SATURDAYS
  7. TEMAZEPAM. [Concomitant]
     Active Substance: TEMAZEPAM
     Dosage: 10 MG, DAILY PRN BEFORE BED
  8. THYROXINE [Concomitant]
     Active Substance: LEVOTHYROXINE
     Dosage: 35 UG, (DURING WEEKDAYS)
  9. THYROXINE [Concomitant]
     Active Substance: LEVOTHYROXINE
     Dosage: 75 UG, DAILY ON WEDNESDAYS
  10. PARACETAMOL [Concomitant]
     Active Substance: ACETAMINOPHEN
     Dosage: 005-1930 MG, TID, PRN
  11. ACLASTA [Suspect]
     Active Substance: ZOLEDRONIC ACID
     Dosage: 5 MG, UNK
     Route: 042
  12. SENNA [Concomitant]
     Active Substance: SENNA LEAF\SENNOSIDES\SENNOSIDES A AND B
     Dosage: 2 DF, BID
  13. ACLASTA [Suspect]
     Active Substance: ZOLEDRONIC ACID
     Dosage: 5 MG, UNK
     Route: 042

REACTIONS (16)
  - Paraesthesia [Unknown]
  - Syncope [Unknown]
  - Weight increased [Unknown]
  - Blood pressure increased [Recovering/Resolving]
  - Osteopenia [Unknown]
  - Hypothyroidism [Unknown]
  - Glomerular filtration rate decreased [Unknown]
  - Cataract [Unknown]
  - Blood cholesterol increased [Unknown]
  - Bone density decreased [Unknown]
  - Malaise [Unknown]
  - Toxic nodular goitre [Recovering/Resolving]
  - Cervix carcinoma [Unknown]
  - Blood creatinine increased [Unknown]
  - Osteoporotic fracture [Recovering/Resolving]
  - Gastrooesophageal reflux disease [Not Recovered/Not Resolved]

NARRATIVE: CASE EVENT DATE: 20130410
